FAERS Safety Report 4526312-9 (Version None)
Quarter: 2004Q4

REPORT INFORMATION
  Report Type: 
  Country: None (occurrence: None)
  Receive Date: 20041201
  Receipt Date: 20041026
  Transmission Date: 20050328
  Serious: Yes (Hospitalization, Other)
  Sender: FDA-Public Use
  Company Number: US098381

PATIENT
  Age: 7 Year
  Sex: Male
  Weight: 13 kg

DRUGS (4)
  1. ENBREL [Suspect]
     Indication: JUVENILE ARTHRITIS
     Dosage: 25 MG, 2 IN 1 WEEKS, SC
     Route: 058
     Dates: start: 20040909, end: 20040901
  2. CYCLOSPORINE [Concomitant]
  3. METHOTREXATE [Concomitant]
  4. UNSPECIFIED MEDICATION (UNSPECIFIED NON-STEROIDAL ANTI-INFLAMMATORY AG [Concomitant]

REACTIONS (1)
  - CARDIAC FAILURE CONGESTIVE [None]
